FAERS Safety Report 18436322 (Version 5)
Quarter: 2022Q2

REPORT INFORMATION
  Report Type: Spontaneous
  Country: GB (occurrence: GB)
  Receive Date: 20201028
  Receipt Date: 20220624
  Transmission Date: 20220720
  Serious: Yes (Hospitalization, Other)
  Sender: FDA-Public Use
  Company Number: GB-VIIV HEALTHCARE LIMITED-35549

PATIENT

DRUGS (5)
  1. TRIUMEQ [Interacting]
     Active Substance: ABACAVIR SULFATE\DOLUTEGRAVIR SODIUM\LAMIVUDINE
     Indication: Product used for unknown indication
     Dosage: UNK
  2. ALCOHOL [Interacting]
     Active Substance: ALCOHOL
     Indication: Product used for unknown indication
     Dosage: UNK
  3. METHAMPHETAMINE [Suspect]
     Active Substance: METHAMPHETAMINE
     Indication: Product used for unknown indication
     Dosage: UNK
  4. KETAMINE [Suspect]
     Active Substance: KETAMINE
     Indication: Product used for unknown indication
     Dosage: UNK
  5. OXYBATE [Suspect]
     Active Substance: OXYBATE
     Indication: Product used for unknown indication
     Dosage: UNK

REACTIONS (10)
  - Substance abuse [Unknown]
  - Intentional overdose [Unknown]
  - Depressed mood [Unknown]
  - Dependence [Unknown]
  - Suicide attempt [Unknown]
  - Mental disorder [Unknown]
  - Intentional product misuse [Unknown]
  - Alcohol abuse [Unknown]
  - Labelled drug-food interaction medication error [Unknown]
  - Treatment noncompliance [Unknown]
